FAERS Safety Report 13686644 (Version 1)
Quarter: 2017Q2

REPORT INFORMATION
  Report Type: Spontaneous
  Country: US (occurrence: US)
  Receive Date: 20170623
  Receipt Date: 20170623
  Transmission Date: 20170830
  Serious: Yes (Other)
  Sender: FDA-Public Use
  Company Number: US-ELI_LILLY_AND_COMPANY-US201706005600

PATIENT
  Age: 52 Year
  Sex: Female

DRUGS (2)
  1. CARBOPLATIN. [Concomitant]
     Active Substance: CARBOPLATIN
     Indication: NON-SMALL CELL LUNG CANCER
     Dosage: UNK, UNKNOWN
     Route: 065
     Dates: start: 20141122
  2. ALIMTA [Suspect]
     Active Substance: PEMETREXED DISODIUM
     Indication: NON-SMALL CELL LUNG CANCER
     Dosage: UNK, UNKNOWN
     Route: 065
     Dates: start: 20141122

REACTIONS (19)
  - Seizure [Unknown]
  - Confusional state [Unknown]
  - Tremor [Unknown]
  - Vision blurred [Unknown]
  - Fatigue [Unknown]
  - Urinary tract infection [Unknown]
  - Vomiting [Unknown]
  - Off label use [Unknown]
  - Hallucination [Unknown]
  - Mood altered [Unknown]
  - Grip strength decreased [Unknown]
  - Asthenia [Unknown]
  - Oedema [Unknown]
  - Muscle twitching [Unknown]
  - Decreased appetite [Unknown]
  - Pancytopenia [Unknown]
  - Malignant neoplasm progression [Unknown]
  - Memory impairment [Unknown]
  - Nausea [Unknown]
